FAERS Safety Report 6958753-4 (Version None)
Quarter: 2010Q3

REPORT INFORMATION
  Report Type: 
  Country: None (occurrence: None)
  Receive Date: 20100831
  Receipt Date: 20100623
  Transmission Date: 20110219
  Serious: Yes (Hospitalization, Disabling)
  Sender: FDA-Public Use
  Company Number: PHHY2010US40869

PATIENT
  Age: 19 Year
  Sex: Female

DRUGS (2)
  1. FAMVIR [Suspect]
     Indication: ORAL HERPES
     Dosage: UNK
  2. ACYCLOVIR [Suspect]
     Indication: ORAL HERPES
     Dosage: UNK
     Route: 048

REACTIONS (1)
  - MYOCLONUS [None]
